FAERS Safety Report 20814369 (Version 1)
Quarter: 2022Q2

REPORT INFORMATION
  Report Type: Report from Study
  Country: US (occurrence: US)
  Receive Date: 20220511
  Receipt Date: 20220511
  Transmission Date: 20220721
  Serious: Yes (Other)
  Sender: FDA-Public Use
  Company Number: US-BRISTOL-MYERS SQUIBB COMPANY-2022-036808

PATIENT

DRUGS (6)
  1. ZEPOSIA [Suspect]
     Active Substance: OZANIMOD HYDROCHLORIDE
     Indication: Colitis ulcerative
     Route: 065
  2. MESALAMINE [Concomitant]
     Active Substance: MESALAMINE
     Route: 048
  3. MESALAMINE [Concomitant]
     Active Substance: MESALAMINE
  4. BUDESONIDE [Concomitant]
     Active Substance: BUDESONIDE
  5. AZATHIOPRINE [Concomitant]
     Active Substance: AZATHIOPRINE
  6. REMICADE [Concomitant]
     Active Substance: INFLIXIMAB

REACTIONS (1)
  - Drug ineffective [Unknown]
